FAERS Safety Report 9243506 (Version 1)
Quarter: 2013Q1

REPORT INFORMATION
  Report Type: Spontaneous
  Country: US (occurrence: None)
  Receive Date: 20121123
  Receipt Date: 20121123
  Transmission Date: 20140127
  Serious: No
  Sender: FDA-Public Use
  Company Number: 358542

PATIENT
  Age: 79 Year
  Sex: Female
  Weight: 90.7 kg

DRUGS (11)
  1. VICTOZA (LIRAGLUTIDE) SOLUTION FOR INJECTION, 6MG/ML [Suspect]
     Indication: WEIGHT INCREASED
     Route: 058
     Dates: start: 201202, end: 201207
  2. NOVOLOG [Suspect]
     Indication: TYPE 2 DIABETES MELLITUS
     Dosage: SLIDING SCALE, TID, SUBCUTANEOUS
     Route: 058
     Dates: start: 2011
  3. LEVEMIR [Suspect]
     Indication: TYPE 2 DIABETES MELLITUS
     Dosage: SLIDING SCALE, QDM SUBCUTANEOUS
     Route: 058
     Dates: start: 2011
  4. ATORVASTATIN (ATORVASTATIN) [Concomitant]
  5. LEVOTHYROXINE (LEVOTHYROXINE) [Concomitant]
  6. 3)?METOPROLOL (METOPROLOL) [Concomitant]
  7. 3)?AMIODARONE (AMIODARONE) [Concomitant]
  8. 3)?HYDRALAZINE (HYDRALAZINE) [Concomitant]
  9. 3)?AMLODIPINE BESYLATE (AMLODIPINE BESILATE) [Concomitant]
  10. 3)?PAXIL (PAROXETINE HYDROCHLORIDE) [Concomitant]
  11. CALCITRIOL (CALCITRIOL) [Concomitant]

REACTIONS (3)
  - Cholelithiasis [None]
  - Oesophageal mass [None]
  - Nausea [None]
